FAERS Safety Report 20668726 (Version 1)
Quarter: 2022Q2

REPORT INFORMATION
  Report Type: Report from Study
  Country: CO (occurrence: CO)
  Receive Date: 20220404
  Receipt Date: 20220404
  Transmission Date: 20220721
  Serious: Yes (Other)
  Sender: FDA-Public Use
  Company Number: CO-BAYER-2022A045706

PATIENT
  Age: 64 Year
  Sex: Male

DRUGS (1)
  1. NEXAVAR [Suspect]
     Active Substance: SORAFENIB
     Indication: Hepatic cancer metastatic
     Dosage: 400 MG, BID
     Dates: start: 20220217, end: 20220327

REACTIONS (2)
  - Hepatic cancer metastatic [Not Recovered/Not Resolved]
  - Liver disorder [None]

NARRATIVE: CASE EVENT DATE: 20220327
